FAERS Safety Report 10231200 (Version 1)
Quarter: 2014Q2

REPORT INFORMATION
  Report Type: Spontaneous
  Country: US (occurrence: US)
  Receive Date: 20140611
  Receipt Date: 20140611
  Transmission Date: 20141212
  Serious: Yes (Death)
  Sender: FDA-Public Use
  Company Number: US-ROXANE LABORATORIES, INC.-2014-BI-25396GD

PATIENT
  Age: 43 Year
  Sex: Female

DRUGS (4)
  1. PREDNISONE [Suspect]
     Indication: ASTHMA
     Dosage: 50 MG
     Route: 065
  2. FLUTICASONE W/SALMETEROL [Suspect]
     Indication: ASTHMA
     Dosage: 500-50 MCG/PUFF
     Route: 065
  3. IPRATROPIUM [Concomitant]
     Indication: ASTHMA
     Route: 065
  4. ALBUTEROL [Concomitant]
     Indication: ASTHMA
     Route: 055

REACTIONS (3)
  - Blastomycosis [Fatal]
  - Lung infection [Fatal]
  - Acute respiratory distress syndrome [Fatal]
